FAERS Safety Report 14074462 (Version 1)
Quarter: 2017Q4

REPORT INFORMATION
  Report Type: Spontaneous
  Country: DK (occurrence: DK)
  Receive Date: 20171011
  Receipt Date: 20171011
  Transmission Date: 20180321
  Serious: Yes (Hospitalization)
  Sender: FDA-Public Use
  Company Number: DK-TEVA-2014-12189

PATIENT
  Age: 59 Year
  Sex: Female
  Weight: 95 kg

DRUGS (4)
  1. PAMOL [Concomitant]
     Active Substance: ACETAMINOPHEN
     Indication: PAIN
     Dosage: 3000 MILLIGRAM DAILY; 1-AUG-2016 TO 18-AUG-2016; 20-JUL-2017 TO 22-JUL-2017
     Route: 048
     Dates: start: 20160801, end: 20170722
  2. ESCITALOPRAM [Suspect]
     Active Substance: ESCITALOPRAM OXALATE
     Indication: DEPRESSION
     Route: 048
     Dates: start: 201403, end: 201701
  3. CISORDINOL [Concomitant]
     Active Substance: ZUCLOPENTHIXOL
     Indication: SEDATIVE THERAPY
     Route: 048
     Dates: start: 20091209
  4. SERTRALINE [Concomitant]
     Active Substance: SERTRALINE HYDROCHLORIDE
     Route: 048
     Dates: start: 2014, end: 2014

REACTIONS (6)
  - Withdrawal syndrome [Unknown]
  - Urinary incontinence [Recovered/Resolved]
  - Dyspnoea [Recovering/Resolving]
  - Pollakiuria [Recovered/Resolved]
  - Suicide attempt [Recovered/Resolved]
  - Suicidal ideation [Recovered/Resolved]

NARRATIVE: CASE EVENT DATE: 2014
